FAERS Safety Report 13738025 (Version 6)
Quarter: 2017Q3

REPORT INFORMATION
  Report Type: Report from Study
  Country: US (occurrence: US)
  Receive Date: 20170710
  Receipt Date: 20170927
  Transmission Date: 20171127
  Serious: Yes (Life-Threatening, Hospitalization)
  Sender: FDA-Public Use
  Company Number: US-SA-2017SA119522

PATIENT
  Age: 29 Year
  Sex: Female

DRUGS (6)
  1. LEMTRADA [Suspect]
     Active Substance: ALEMTUZUMAB
     Indication: MULTIPLE SCLEROSIS
     Route: 041
     Dates: start: 20160509, end: 20160513
  2. BUSPIRONE [Concomitant]
     Active Substance: BUSPIRONE HYDROCHLORIDE
     Indication: ANXIETY
     Dosage: 7.5 MG TABLET
     Dates: start: 2015
  3. LEMTRADA [Suspect]
     Active Substance: ALEMTUZUMAB
     Indication: MULTIPLE SCLEROSIS
     Route: 041
     Dates: start: 20170628, end: 20170628
  4. PAROXETINE. [Concomitant]
     Active Substance: PAROXETINE
     Indication: DEPRESSION
     Dates: start: 2015
  5. ACYCLOVIR. [Concomitant]
     Active Substance: ACYCLOVIR
     Indication: INFECTION
     Dosage: 400 MG TABLET
     Dates: start: 2016
  6. GABAPENTIN. [Concomitant]
     Active Substance: GABAPENTIN
     Indication: PAIN
     Dosage: 300 MG CAPSULE
     Dates: start: 2015

REACTIONS (17)
  - Migraine [Not Recovered/Not Resolved]
  - Oxygen saturation decreased [Not Recovered/Not Resolved]
  - Heart rate increased [Recovered/Resolved]
  - Arthralgia [Unknown]
  - Incoherent [Unknown]
  - Decreased appetite [Unknown]
  - Fatigue [Unknown]
  - Insomnia [Unknown]
  - Blood pressure increased [Not Recovered/Not Resolved]
  - Pyrexia [Recovered/Resolved]
  - Cold sweat [Unknown]
  - Pain in extremity [Unknown]
  - Ill-defined disorder [Unknown]
  - Back pain [Unknown]
  - Chills [Recovered/Resolved]
  - White blood cell count increased [Not Recovered/Not Resolved]
  - Dyspnoea [Unknown]

NARRATIVE: CASE EVENT DATE: 2017
